FAERS Safety Report 8941636 (Version 1)
Quarter: 2012Q4

REPORT INFORMATION
  Report Type: 
  Country: US (occurrence: US)
  Receive Date: 20121203
  Receipt Date: 20121203
  Transmission Date: 20130627
  Serious: Yes (Hospitalization, Congenital Anomaly, Other)
  Sender: FDA-Public Use
  Company Number: US-PFIZER INC-2012297640

PATIENT
  Sex: Male
  Weight: 2.9 kg

DRUGS (2)
  1. ZOLOFT [Suspect]
     Dosage: UNK
     Route: 064
  2. PRENATAL VITAMINS [Concomitant]
     Dosage: UNK
     Route: 064

REACTIONS (13)
  - Maternal exposure timing unspecified [Unknown]
  - Cardiac failure congestive [Unknown]
  - Congenital aortic stenosis [Recovered/Resolved]
  - Neonatal respiratory distress syndrome [Unknown]
  - Heart disease congenital [Unknown]
  - Ventricular septal defect [Recovered/Resolved]
  - Tricuspid valve incompetence [Unknown]
  - Mitral valve incompetence [Unknown]
  - Mitral valve prolapse [Unknown]
  - Persistent left superior vena cava [Recovered/Resolved]
  - Atrial septal defect [Recovered/Resolved]
  - Dilatation ventricular [Unknown]
  - Left ventricular hypertrophy [Unknown]
